FAERS Safety Report 7496002-1 (Version None)
Quarter: 2011Q2

REPORT INFORMATION
  Report Type: 
  Country: None (occurrence: None)
  Receive Date: 20110523
  Receipt Date: 20110515
  Transmission Date: 20111010
  Serious: Yes (Other)
  Sender: FDA-Public Use
  Company Number: IT-EISAI INC-E3810-04676-SPO-IT

PATIENT
  Age: 69 Year
  Sex: Female

DRUGS (5)
  1. PROMAZINE HYDROCHLORIDE [Suspect]
     Indication: ILL-DEFINED DISORDER
     Route: 048
     Dates: start: 20110515
  2. LORAZEPAM [Suspect]
     Indication: ILL-DEFINED DISORDER
     Route: 048
     Dates: start: 20110515
  3. RABEPRAZOLE SODIUM [Suspect]
     Indication: ILL-DEFINED DISORDER
     Dosage: UNKNOWN
     Route: 048
     Dates: start: 20110515
  4. ESCITALOPRAM [Suspect]
     Indication: ILL-DEFINED DISORDER
     Route: 048
     Dates: start: 20110515
  5. FLURAZEPAM HCL [Suspect]
     Indication: ILL-DEFINED DISORDER
     Dates: start: 20110515

REACTIONS (3)
  - SOPOR [None]
  - MULTIPLE DRUG OVERDOSE INTENTIONAL [None]
  - SELF INJURIOUS BEHAVIOUR [None]
